FAERS Safety Report 13718906 (Version 1)
Quarter: 2017Q3

REPORT INFORMATION
  Report Type: Spontaneous
  Country: US (occurrence: US)
  Receive Date: 20170705
  Receipt Date: 20170705
  Transmission Date: 20171127
  Serious: No
  Sender: FDA-Public Use
  Company Number: US-JNJFOC-20170526434

PATIENT
  Sex: Male
  Weight: 68.04 kg

DRUGS (2)
  1. DURAGESIC [Suspect]
     Active Substance: FENTANYL
     Indication: PAIN
     Route: 062
     Dates: start: 2003
  2. DURAGESIC [Suspect]
     Active Substance: FENTANYL
     Indication: PAIN
     Route: 062

REACTIONS (5)
  - Product adhesion issue [Unknown]
  - Feeling abnormal [Unknown]
  - Fumbling [Unknown]
  - Wrong technique in product usage process [Unknown]
  - Drug dose omission [Unknown]
